FAERS Safety Report 18600589 (Version 2)
Quarter: 2020Q4

REPORT INFORMATION
  Report Type: Spontaneous
  Country: IL (occurrence: IL)
  Receive Date: 20201210
  Receipt Date: 20201228
  Transmission Date: 20210114
  Serious: Yes (Death, Hospitalization, Other)
  Sender: FDA-Public Use
  Company Number: IL-LANNETT COMPANY, INC.-IL-2020LAN000315

PATIENT
  Age: 86 Year
  Sex: Male
  Weight: 61 kg

DRUGS (17)
  1. DANAZOL. [Suspect]
     Active Substance: DANAZOL
     Indication: MYELOFIBROSIS
     Dosage: 300 MG, BID
     Route: 048
     Dates: start: 20200917, end: 20201016
  2. ALFUZOSIN [Concomitant]
     Active Substance: ALFUZOSIN
     Indication: PRODUCT USED FOR UNKNOWN INDICATION
     Dosage: UNK
     Route: 065
     Dates: start: 201707
  3. SPIRONOLACTONE. [Concomitant]
     Active Substance: SPIRONOLACTONE
     Indication: PRODUCT USED FOR UNKNOWN INDICATION
     Dosage: UNK
     Route: 065
     Dates: start: 2018
  4. EUTHYROX [Concomitant]
     Active Substance: LEVOTHYROXINE SODIUM
     Indication: PRODUCT USED FOR UNKNOWN INDICATION
     Dosage: UNK
     Route: 065
  5. DANAZOL. [Suspect]
     Active Substance: DANAZOL
     Dosage: 300 MG, QD (TAKEN ONCE IN THE EVENING)
     Route: 048
     Dates: start: 20201021, end: 20201021
  6. OPTALGIN [Concomitant]
     Active Substance: METAMIZOLE
     Indication: PRODUCT USED FOR UNKNOWN INDICATION
     Dosage: UNK
     Route: 065
  7. DANAZOL. [Suspect]
     Active Substance: DANAZOL
     Dosage: 300 MG, BID (TAKEN ONCE IN THE MONING)
     Route: 048
     Dates: start: 20201017, end: 20201017
  8. PLACEBO [Suspect]
     Active Substance: UNSPECIFIED INGREDIENT
     Dosage: 200 MG, QD
     Route: 048
     Dates: start: 20201019, end: 20201021
  9. JARDIANCE [Concomitant]
     Active Substance: EMPAGLIFLOZIN
     Indication: PRODUCT USED FOR UNKNOWN INDICATION
     Dosage: UNK
     Route: 065
     Dates: start: 202006
  10. DANAZOL. [Suspect]
     Active Substance: DANAZOL
     Dosage: 300 MG, BID (TAKEN ONCE IN THE EVENING)
     Route: 048
     Dates: start: 20201018, end: 20201018
  11. CARDILOC [Concomitant]
     Active Substance: BISOPROLOL FUMARATE
     Indication: PRODUCT USED FOR UNKNOWN INDICATION
     Dosage: UNK
     Route: 065
     Dates: start: 2018
  12. FUSID                              /00032601/ [Concomitant]
     Active Substance: FUROSEMIDE
     Indication: PRODUCT USED FOR UNKNOWN INDICATION
     Dosage: UNK
     Route: 065
     Dates: start: 2018
  13. TRAZODIL [Concomitant]
     Indication: PRODUCT USED FOR UNKNOWN INDICATION
     Dosage: UNK
     Route: 065
     Dates: start: 20200827
  14. DANAZOL. [Suspect]
     Active Substance: DANAZOL
     Dosage: 300 MG, BID
     Route: 048
     Dates: start: 20201019, end: 20201020
  15. PLACEBO [Suspect]
     Active Substance: UNSPECIFIED INGREDIENT
     Indication: MYELOFIBROSIS
     Dosage: 200 MG, QD
     Route: 048
     Dates: start: 20200917, end: 20201017
  16. FAMOTIDINE. [Concomitant]
     Active Substance: FAMOTIDINE
     Indication: PRODUCT USED FOR UNKNOWN INDICATION
     Dosage: UNK
     Route: 065
     Dates: start: 20200811
  17. ELIQUIS [Concomitant]
     Active Substance: APIXABAN
     Indication: PRODUCT USED FOR UNKNOWN INDICATION
     Dosage: UNK
     Route: 065
     Dates: start: 20200811, end: 20201016

REACTIONS (8)
  - Chest pain [Fatal]
  - Subarachnoid haemorrhage [Not Recovered/Not Resolved]
  - Acute kidney injury [Unknown]
  - Hyponatraemia [Unknown]
  - Pneumonia [Not Recovered/Not Resolved]
  - Cardiogenic shock [Unknown]
  - Delirium [Unknown]
  - Haemodynamic instability [Unknown]

NARRATIVE: CASE EVENT DATE: 202010
